FAERS Safety Report 25527293 (Version 3)
Quarter: 2025Q3

REPORT INFORMATION
  Report Type: Report from Study
  Country: CA (occurrence: CA)
  Receive Date: 20250708
  Receipt Date: 20250912
  Transmission Date: 20251020
  Serious: Yes (Hospitalization)
  Sender: ABBVIE
  Company Number: CA-ABBVIE-6359116

PATIENT
  Age: 53 Year
  Sex: Female

DRUGS (2)
  1. SKYRIZI [Suspect]
     Active Substance: RISANKIZUMAB-RZAA
     Indication: Crohn^s disease
     Dosage: 360MG/2.4ML
     Route: 058
     Dates: start: 20150825, end: 202505
  2. CEPHALEXIN [Concomitant]
     Active Substance: CEPHALEXIN
     Indication: Product used for unknown indication
     Dosage: TAKE 1 TABLET FOUR TIMES A DAY FOR 10 DAYS
     Route: 048

REACTIONS (3)
  - Ileostomy closure [Recovering/Resolving]
  - Postoperative wound infection [Recovering/Resolving]
  - Cyst rupture [Recovering/Resolving]

NARRATIVE: CASE EVENT DATE: 20250101
